FAERS Safety Report 4911411-X (Version None)
Quarter: 2006Q1

REPORT INFORMATION
  Report Type: 
  Country: None (occurrence: None)
  Receive Date: 20060113
  Receipt Date: 20051107
  Transmission Date: 20060701
  Serious: No
  Sender: FDA-Public Use
  Company Number: 2005SP003888

PATIENT
  Age: 68 Year
  Sex: Male
  Weight: 127.0072 kg

DRUGS (1)
  1. LUNESTA [Suspect]
     Dosage: 1 MG; HS; ORAL
     Route: 048
     Dates: start: 20051104

REACTIONS (1)
  - SOMNOLENCE [None]
